FAERS Safety Report 8131115-2 (Version None)
Quarter: 2012Q1

REPORT INFORMATION
  Report Type: 
  Country: None (occurrence: None)
  Receive Date: 20120209
  Receipt Date: 20120209
  Transmission Date: 20120608
  Serious: Yes (Hospitalization)
  Sender: FDA-Public Use
  Company Number: None

PATIENT
  Sex: Male
  Weight: 88 kg

DRUGS (13)
  1. AMBIEN [Concomitant]
  2. CELLCEPT [Concomitant]
  3. BACTRIM [Concomitant]
  4. BELATACEPT 250 MG. VIALS BRISTOL-MYERS SQUIBB [Suspect]
     Indication: IMMUNOSUPPRESSION
     Dosage: 10 MG/KG
     Dates: start: 20111028
  5. ASPART INSULIN [Concomitant]
  6. K PHOS NEUTRAL [Concomitant]
  7. VALCYTE [Concomitant]
  8. LANTUS [Concomitant]
  9. AVODART [Concomitant]
  10. SERTRALINE HYDROCHLORIDE [Concomitant]
  11. PREDNISONE TAB [Concomitant]
  12. MULTI-VITAMINS [Concomitant]
  13. ASPIRIN [Concomitant]

REACTIONS (6)
  - PYREXIA [None]
  - PAIN [None]
  - CATHETER SITE PAIN [None]
  - INTRA-ABDOMINAL HAEMATOMA [None]
  - DIARRHOEA [None]
  - BACTERIAL TEST POSITIVE [None]
